FAERS Safety Report 7590111-4 (Version None)
Quarter: 2011Q3

REPORT INFORMATION
  Report Type: 
  Country: None (occurrence: None)
  Receive Date: 20110705
  Receipt Date: 20110627
  Transmission Date: 20111222
  Serious: Yes (Other)
  Sender: FDA-Public Use
  Company Number: B0729652A

PATIENT
  Sex: Female

DRUGS (2)
  1. PACLITAXEL [Suspect]
     Route: 048
     Dates: start: 20100613
  2. TYKERB [Suspect]
     Dosage: 1500MG PER DAY
     Route: 048
     Dates: start: 20100714

REACTIONS (1)
  - NEUTROPHIL COUNT DECREASED [None]
